FAERS Safety Report 23357912 (Version 2)
Quarter: 2024Q1

REPORT INFORMATION
  Report Type: Report from Study
  Country: US (occurrence: US)
  Receive Date: 20240102
  Receipt Date: 20240104
  Transmission Date: 20240410
  Serious: Yes (Hospitalization, Other)
  Sender: FDA-Public Use
  Company Number: US-Accord-398497

PATIENT

DRUGS (4)
  1. FLUOROURACIL [Suspect]
     Active Substance: FLUOROURACIL
     Route: 064
  2. PACLITAXEL [Suspect]
     Active Substance: PACLITAXEL
     Route: 064
  3. DOXORUBICIN [Suspect]
     Active Substance: DOXORUBICIN
     Route: 064
  4. CYCLOPHOSPHAMIDE [Suspect]
     Active Substance: CYCLOPHOSPHAMIDE
     Route: 064

REACTIONS (6)
  - Femoral anteversion [Unknown]
  - Foetal exposure during pregnancy [Unknown]
  - Retinopathy of prematurity [Unknown]
  - Premature baby [Unknown]
  - Eyelid disorder [Unknown]
  - Tooth hypoplasia [Unknown]
